FAERS Safety Report 6691939-5 (Version None)
Quarter: 2010Q2

REPORT INFORMATION
  Report Type: 
  Country: None (occurrence: None)
  Receive Date: 20100422
  Receipt Date: 20090223
  Transmission Date: 20101027
  Serious: No
  Sender: FDA-Public Use
  Company Number: US-ASTRAZENECA-2009UW04994

PATIENT
  Sex: Female

DRUGS (2)
  1. TOPROL-XL [Suspect]
     Route: 048
  2. METOPROLOL TARTRATE [Suspect]
     Route: 048
     Dates: start: 20090218

REACTIONS (3)
  - ANXIETY [None]
  - BODY TEMPERATURE FLUCTUATION [None]
  - FATIGUE [None]
